FAERS Safety Report 9181468 (Version 2)
Quarter: 2013Q2

REPORT INFORMATION
  Report Type: Report from Study
  Country: AU (occurrence: AU)
  Receive Date: 20130322
  Receipt Date: 20130625
  Transmission Date: 20140414
  Serious: Yes (Other)
  Sender: FDA-Public Use
  Company Number: AU-BRISTOL-MYERS SQUIBB COMPANY-17477928

PATIENT
  Age: 67 Year
  Sex: Male

DRUGS (11)
  1. APIXABAN [Suspect]
     Indication: THROMBOSIS PROPHYLAXIS
     Dosage: 5MG:2IN1DAY
     Route: 048
     Dates: start: 20091218
  2. MICARDIS [Concomitant]
  3. CRESTOR [Concomitant]
  4. DIAZEPAM [Concomitant]
  5. DIGOXIN [Concomitant]
  6. PANTOPRAZOLE [Concomitant]
  7. ATENOLOL [Concomitant]
  8. ALDACTONE [Concomitant]
     Dosage: MON AND THUR
  9. FRUSEMIDE [Concomitant]
     Dosage: MON AND THUR
  10. VERAPAMIL [Concomitant]
  11. PANADOL [Concomitant]
     Dosage: OSTEO

REACTIONS (1)
  - Syncope [Recovered/Resolved]
